FAERS Safety Report 9752220 (Version 1)
Quarter: 2013Q4

REPORT INFORMATION
  Report Type: Spontaneous
  Country: US (occurrence: None)
  Receive Date: 20131212
  Receipt Date: 20131212
  Transmission Date: 20140711
  Serious: Yes (Life-Threatening, Hospitalization, Disabling)
  Sender: FDA-Public Use
  Company Number: None

PATIENT
  Age: 44 None
  Sex: Female

DRUGS (5)
  1. OLANZAPINE [Suspect]
     Indication: MENTAL DISORDER
     Dosage: STARTED ABOUT 3 YEARS AGO STOPPED ABOUT 2 YEARS AGO
     Route: 048
  2. BENEDRYLL [Concomitant]
  3. OLANZAPINE [Concomitant]
  4. VITAMIN C +E [Concomitant]
  5. CATHETERIZED HIM [Suspect]
     Dates: start: 201301

REACTIONS (7)
  - Amenorrhoea [None]
  - Dyskinesia [None]
  - Dysgraphia [None]
  - Activities of daily living impaired [None]
  - Injection site pain [None]
  - Onychophagia [None]
  - Coagulopathy [None]
